FAERS Safety Report 13168013 (Version 3)
Quarter: 2018Q1

REPORT INFORMATION
  Report Type: Spontaneous
  Country: US (occurrence: US)
  Receive Date: 20170131
  Receipt Date: 20180323
  Transmission Date: 20180508
  Serious: Yes (Other)
  Sender: FDA-Public Use
  Company Number: US-ELI_LILLY_AND_COMPANY-US201701009177

PATIENT
  Sex: Male

DRUGS (5)
  1. HUMALOG [Suspect]
     Active Substance: INSULIN LISPRO
     Dosage: UP TO 200 U, DAILY
  2. HUMALOG [Suspect]
     Active Substance: INSULIN LISPRO
     Dosage: UP TO 200 U, DAILY
  3. HUMALOG [Suspect]
     Active Substance: INSULIN LISPRO
     Indication: TYPE 1 DIABETES MELLITUS
     Dosage: UP TO 200 U, DAILY
     Dates: start: 1997
  4. RANITIDINE. [Concomitant]
     Active Substance: RANITIDINE
     Indication: GASTROOESOPHAGEAL REFLUX PROPHYLAXIS
     Dosage: 300 MG, EACH EVENING
  5. DEXILANT [Concomitant]
     Active Substance: DEXLANSOPRAZOLE
     Indication: GASTROOESOPHAGEAL REFLUX PROPHYLAXIS
     Dosage: 60 MG, DAILY

REACTIONS (21)
  - Eye infection bacterial [Unknown]
  - Insomnia [Unknown]
  - Staphylococcal infection [Unknown]
  - Diabetic ketoacidosis [Unknown]
  - Drug effect decreased [Unknown]
  - Back injury [Unknown]
  - Pneumonia bacterial [Unknown]
  - Chronic obstructive pulmonary disease [Unknown]
  - Renal failure [Unknown]
  - Productive cough [Unknown]
  - Dysphonia [Unknown]
  - Hypoglycaemia unawareness [Unknown]
  - Bacterial infection [Unknown]
  - Impaired gastric emptying [Unknown]
  - Dyspnoea [Unknown]
  - Blood glucose increased [Unknown]
  - Pneumonia aspiration [Unknown]
  - Bronchitis chronic [Unknown]
  - Blood glucose decreased [Unknown]
  - Tracheomalacia [Unknown]
  - Pneumonia viral [Unknown]

NARRATIVE: CASE EVENT DATE: 2005
